FAERS Safety Report 18135928 (Version 1)
Quarter: 2020Q3

REPORT INFORMATION
  Report Type: Spontaneous
  Country: ES (occurrence: ES)
  Receive Date: 20200811
  Receipt Date: 20200811
  Transmission Date: 20201103
  Serious: Yes (Other)
  Sender: FDA-Public Use
  Company Number: ES-US-PROVELL PHARMACEUTICALS LLC-9171312

PATIENT
  Age: 44 Year
  Sex: Female

DRUGS (1)
  1. EUTIROX [Suspect]
     Active Substance: LEVOTHYROXINE SODIUM
     Indication: HYPOTHYROIDISM
     Dates: start: 2014

REACTIONS (3)
  - Colitis microscopic [Unknown]
  - Reaction to excipient [Unknown]
  - Bacterial infection [Unknown]

NARRATIVE: CASE EVENT DATE: 2019
